FAERS Safety Report 8913253 (Version 1)
Quarter: 2012Q4

REPORT INFORMATION
  Report Type: 
  Country: US (occurrence: US)
  Receive Date: 20121119
  Receipt Date: 20121119
  Transmission Date: 20130627
  Serious: Yes (Death)
  Sender: FDA-Public Use
  Company Number: US-JNJFOC-2006117528

PATIENT
  Age: 33 Year
  Sex: Male

DRUGS (5)
  1. IBUPROFEN [Suspect]
     Indication: PRODUCT USED FOR UNKNOWN INDICATION
  2. ZOLOFT [Suspect]
     Indication: DEPRESSION
     Dates: start: 200504
  3. ZOLOFT [Suspect]
     Indication: ANGER
     Dates: start: 200504
  4. ZOLOFT [Suspect]
     Indication: ANXIETY
     Dates: start: 200504
  5. ETHANOL [Suspect]
     Indication: PRODUCT USED FOR UNKNOWN INDICATION

REACTIONS (1)
  - Death [Fatal]
